FAERS Safety Report 18306870 (Version 1)
Quarter: 2020Q3

REPORT INFORMATION
  Report Type: Spontaneous
  Country: US (occurrence: US)
  Receive Date: 20200924
  Receipt Date: 20200924
  Transmission Date: 20201103
  Serious: Yes (Other)
  Sender: FDA-Public Use
  Company Number: US-TEVA-2020-US-1830094

PATIENT
  Sex: Male

DRUGS (1)
  1. QVAR REDIHALER [Suspect]
     Active Substance: BECLOMETHASONE DIPROPIONATE
     Indication: PRODUCT USED FOR UNKNOWN INDICATION
     Dosage: 160 MICROGRAM DAILY; DOSE: 80 MCG, 2 PUFFS DAILY, ONE IN THE MORNING AND ONE AT NIGHT
     Route: 055
     Dates: end: 202009

REACTIONS (5)
  - Fatigue [Recovering/Resolving]
  - Weight decreased [Unknown]
  - Asthenia [Recovering/Resolving]
  - Pulmonary fibrosis [Unknown]
  - Cough [Unknown]

NARRATIVE: CASE EVENT DATE: 202009
